FAERS Safety Report 16415382 (Version 1)
Quarter: 2019Q2

REPORT INFORMATION
  Report Type: Spontaneous
  Country: US (occurrence: US)
  Receive Date: 20190611
  Receipt Date: 20190611
  Transmission Date: 20190711
  Serious: No
  Sender: FDA-Public Use
  Company Number: US-SA-2019SA150828

PATIENT
  Age: 35 Year
  Sex: Female

DRUGS (1)
  1. ALLEGRA ALLERGY [Suspect]
     Active Substance: FEXOFENADINE HYDROCHLORIDE
     Indication: HYPERSENSITIVITY
     Dosage: UNK UNK, QD
     Route: 065
     Dates: start: 20190324, end: 20190324

REACTIONS (11)
  - Musculoskeletal stiffness [Not Recovered/Not Resolved]
  - Pain [Not Recovered/Not Resolved]
  - Myalgia [Not Recovered/Not Resolved]
  - Gastrointestinal disorder [Unknown]
  - Fall [Unknown]
  - Arthralgia [Not Recovered/Not Resolved]
  - Nervous system disorder [Unknown]
  - Hypokinesia [Not Recovered/Not Resolved]
  - Aphasia [Unknown]
  - Muscular weakness [Unknown]
  - Back pain [Not Recovered/Not Resolved]

NARRATIVE: CASE EVENT DATE: 20190324
